FAERS Safety Report 23757824 (Version 1)
Quarter: 2024Q2

REPORT INFORMATION
  Report Type: Spontaneous
  Country: CH (occurrence: CH)
  Receive Date: 20240418
  Receipt Date: 20240418
  Transmission Date: 20240716
  Serious: Yes (Hospitalization)
  Sender: FDA-Public Use
  Company Number: None

PATIENT
  Age: 70 Year
  Sex: Female

DRUGS (8)
  1. LYRICA [Suspect]
     Active Substance: PREGABALIN
     Indication: Neuralgia
     Dosage: 25 MILLIGRAM, BID (EVERY 12 HOURS PRESCRIPTION FROM 6-MAR-2024)
     Route: 048
     Dates: start: 20240306, end: 20240313
  2. LYRICA [Suspect]
     Active Substance: PREGABALIN
     Dosage: 50 MILLIGRAM, BID (EVERY 12 HOURS 50 MG 1-0-1 SINCE APPROXIMATELY 14-MAR-2024, CEASED ON 24-MAR-2024
     Route: 048
     Dates: start: 20240314, end: 20240324
  3. OCREVUS [Concomitant]
     Active Substance: OCRELIZUMAB
     Indication: Primary progressive multiple sclerosis
     Dosage: 600 MILLIGRAM (EVERY 6 MONTHS OCREVUS 600 MG I.V. EVERY 6 MONTHS SINCE SEP 2021 2ND DOSE 21 SEP 2021
     Route: 042
     Dates: start: 20210907
  4. OCREVUS [Concomitant]
     Active Substance: OCRELIZUMAB
     Dosage: 600 MILLIGRAM (EVERY 12 MONTHS MOST RECENTLY SEPTEMBER 2023, NOW EVERY 12 MONTHS (6TH CYCLE SCHEDULE
     Route: 042
     Dates: start: 20230907
  5. DULOXETINE HYDROCHLORIDE [Concomitant]
     Active Substance: DULOXETINE HYDROCHLORIDE
     Dosage: 90 MILLIGRAM, QD
     Route: 048
  6. Fentanyl actavis [Concomitant]
     Indication: Back pain
     Dosage: 75 MICROGRAM (EVERY 3 DAYS)
     Route: 062
  7. OXYCODONE HYDROCHLORIDE [Concomitant]
     Active Substance: OXYCODONE HYDROCHLORIDE
     Indication: Back pain
     Dosage: 1 DOSAGE FORM (AS NECESSARY)
     Route: 048
  8. CHOLECALCIFEROL [Concomitant]
     Active Substance: CHOLECALCIFEROL
     Indication: Osteoporosis prophylaxis
     Dosage: 2000 INTERNATIONAL UNIT, QD
     Route: 048

REACTIONS (5)
  - Anal incontinence [Recovered/Resolved]
  - Muscular weakness [Recovered/Resolved]
  - Headache [Not Recovered/Not Resolved]
  - Urinary incontinence [Recovered/Resolved]
  - Paraesthesia [Recovered/Resolved]

NARRATIVE: CASE EVENT DATE: 20240314
